FAERS Safety Report 12604560 (Version 5)
Quarter: 2018Q1

REPORT INFORMATION
  Report Type: Report from Study
  Country: US (occurrence: US)
  Receive Date: 20160728
  Receipt Date: 20180111
  Transmission Date: 20180508
  Serious: Yes (Other)
  Sender: FDA-Public Use
  Company Number: US-SAOL THERAPEUTICS-2016SAO00256

PATIENT
  Age: 57 Year
  Sex: Female
  Weight: 70.75 kg

DRUGS (25)
  1. HYDROMORPHONE [Concomitant]
     Active Substance: HYDROMORPHONE
  2. CLONIDINE. [Suspect]
     Active Substance: CLONIDINE
     Dosage: 52.57 ?G, \DAY
     Route: 037
     Dates: start: 20170420
  3. CLONIDINE. [Suspect]
     Active Substance: CLONIDINE
     Dosage: 224.99 ?G, \DAY
     Route: 037
     Dates: start: 20170323, end: 20170726
  4. DILAUDID [Suspect]
     Active Substance: HYDROMORPHONE HYDROCHLORIDE
     Dosage: 1.253 MG, \DAY-MAX
     Route: 037
  5. DILAUDID [Suspect]
     Active Substance: HYDROMORPHONE HYDROCHLORIDE
     Dosage: 2.806 MG, \DAY
     Route: 037
     Dates: start: 20160114
  6. BUPIVACAINE. [Suspect]
     Active Substance: BUPIVACAINE
     Dosage: 4.5 MG, \DAY
     Route: 037
     Dates: start: 20170323, end: 20170726
  7. BUPIVACAINE. [Suspect]
     Active Substance: BUPIVACAINE
     Dosage: 6.208 MG, \DAY -MAX
     Route: 037
     Dates: start: 20170323, end: 20170726
  8. COMPOUNDED BACLOFEN [Suspect]
     Active Substance: BACLOFEN
     Dosage: 139.88 ?G, \DAY
     Route: 037
  9. DILAUDID [Suspect]
     Active Substance: HYDROMORPHONE HYDROCHLORIDE
     Dosage: 2.797 MG, \DAY
     Route: 037
  10. BUPIVACAINE. [Suspect]
     Active Substance: BUPIVACAINE
     Dosage: 8.393 MG, \DAY
     Route: 037
  11. CLONIDINE. [Suspect]
     Active Substance: CLONIDINE
     Dosage: 139.88 ?G, \DAY
     Route: 037
  12. DILAUDID [Suspect]
     Active Substance: HYDROMORPHONE HYDROCHLORIDE
     Dosage: 2.483 MG, \DAY - MAX
     Dates: start: 20170323, end: 20170726
  13. BUPIVACAINE. [Suspect]
     Active Substance: BUPIVACAINE
     Dosage: 4.178 MG, \DAY- MAX
     Route: 037
     Dates: start: 20170420
  14. BUPIVACAINE. [Suspect]
     Active Substance: BUPIVACAINE
     Dosage: 3.004 MG, \DAY
     Route: 037
     Dates: start: 20170420
  15. CLONIDINE. [Suspect]
     Active Substance: CLONIDINE
     Dosage: 310 ?G, \DAY-MAX
     Route: 037
     Dates: start: 20170323, end: 20170726
  16. DILAUDID [Suspect]
     Active Substance: HYDROMORPHONE HYDROCHLORIDE
     Dosage: 0.901 MG, \DAY
     Route: 037
     Dates: start: 20170420
  17. COMPOUNDED BACLOFEN [Suspect]
     Active Substance: BACLOFEN
     Indication: PAIN
     Dosage: 140.3 ?G, \DAY
     Route: 037
  18. BUPIVACAINE. [Suspect]
     Active Substance: BUPIVACAINE
     Dosage: 11.224 MG, \DAY
     Route: 037
  19. CLONIDINE. [Suspect]
     Active Substance: CLONIDINE
     Dosage: 140.3 ?G, \DAY
     Route: 037
  20. DILAUDID [Suspect]
     Active Substance: HYDROMORPHONE HYDROCHLORIDE
     Dosage: 1.799 MG, \DAY
     Dates: start: 20170323, end: 20170726
  21. COMPOUNDED BACLOFEN [Suspect]
     Active Substance: BACLOFEN
     Indication: PAIN
     Dosage: 134.99 ?G, \DAY
     Route: 037
     Dates: start: 20170323, end: 20170726
  22. COMPOUNDED BACLOFEN [Suspect]
     Active Substance: BACLOFEN
     Dosage: 186.25 ?G, \DAY - MAX
     Route: 037
     Dates: start: 20170323, end: 20170726
  23. CLONIDINE. [Suspect]
     Active Substance: CLONIDINE
     Dosage: 73.11 MG, \DAY - MAX
     Route: 037
  24. COMPOUNDED BACLOFEN [Suspect]
     Active Substance: BACLOFEN
     Indication: PAIN
     Dosage: 52.57 ?G, \DAY
     Route: 037
     Dates: start: 20170420
  25. COMPOUNDED BACLOFEN [Suspect]
     Active Substance: BACLOFEN
     Dosage: 73.11 ?G, \DAY -MAX
     Route: 037
     Dates: start: 20170420

REACTIONS (8)
  - Arachnoiditis [Recovered/Resolved]
  - Device dislocation [Unknown]
  - Off label use [Unknown]
  - Hyperaesthesia [Recovered/Resolved]
  - Hypoaesthesia [Recovered/Resolved]
  - Burning sensation [Recovering/Resolving]
  - Pain [Recovered/Resolved]
  - Device leakage [Recovered/Resolved]

NARRATIVE: CASE EVENT DATE: 20170627
